FAERS Safety Report 4659963-1 (Version None)
Quarter: 2005Q2

REPORT INFORMATION
  Report Type: 
  Country: None (occurrence: None)
  Receive Date: 20050510
  Receipt Date: 20050427
  Transmission Date: 20051028
  Serious: Yes (Other)
  Sender: FDA-Public Use
  Company Number: 2005069884

PATIENT
  Age: 15 Year
  Sex: Female

DRUGS (2)
  1. VORICONAZOLE            (VORICONAZOLE) [Suspect]
     Indication: FUNGAL INFECTION
     Dosage: 400 MG (1 IN 1 D), ORAL
     Route: 048
     Dates: start: 20020823, end: 20030701
  2. AMPHOTERICIN B [Concomitant]

REACTIONS (16)
  - ACQUIRED EPIDERMOLYSIS BULLOSA [None]
  - BLISTER [None]
  - DRY SKIN [None]
  - EPHELIDES [None]
  - ERYTHEMA [None]
  - KLEBSIELLA INFECTION [None]
  - LENTIGO [None]
  - LICHENOID KERATOSIS [None]
  - LIP BLISTER [None]
  - PHOTOSENSITIVITY REACTION [None]
  - PIGMENTED NAEVUS [None]
  - PORPHYRIA NON-ACUTE [None]
  - ROSACEA [None]
  - SKIN EXFOLIATION [None]
  - SKIN LACERATION [None]
  - SOLAR ELASTOSIS [None]
